FAERS Safety Report 23370816 (Version 3)
Quarter: 2024Q2

REPORT INFORMATION
  Report Type: Spontaneous
  Country: US (occurrence: US)
  Receive Date: 20240105
  Receipt Date: 20240402
  Transmission Date: 20240716
  Serious: No
  Sender: FDA-Public Use
  Company Number: US-SA-SAC20240102001069

PATIENT
  Age: 64 Year
  Sex: Female
  Weight: 56.2 kg

DRUGS (38)
  1. DUPIXENT [Suspect]
     Active Substance: DUPILUMAB
     Indication: Asthma
     Dosage: 200 MG, QOW
     Route: 058
     Dates: start: 202004
  2. AZITHROMYCIN [Concomitant]
     Active Substance: AZITHROMYCIN
  3. PREDNISONE [Concomitant]
     Active Substance: PREDNISONE
  4. PREDNISONE [Concomitant]
     Active Substance: PREDNISONE
  5. KETOROLAC TROMETHAMINE [Concomitant]
     Active Substance: KETOROLAC TROMETHAMINE
  6. NUVIGIL [Concomitant]
     Active Substance: ARMODAFINIL
  7. ASPIRIN [Concomitant]
     Active Substance: ASPIRIN
  8. HYOSCYAMINE SULFATE [Concomitant]
     Active Substance: HYOSCYAMINE SULFATE
  9. MODERNA COVID-19 VACCINE [Concomitant]
     Active Substance: ELASOMERAN
  10. MODERNA COVID-19 VACCINE [Concomitant]
     Active Substance: ELASOMERAN
  11. CALCIUM;VITAMIN D NOS;VITAMIN K NOS [Concomitant]
  12. ESTRACE [Concomitant]
     Active Substance: ESTRADIOL
  13. ESTRACE [Concomitant]
     Active Substance: ESTRADIOL
  14. PROLIA [Concomitant]
     Active Substance: DENOSUMAB
  15. PROLIA [Concomitant]
     Active Substance: DENOSUMAB
  16. PANTOPRAZOLE SODIUM [Concomitant]
     Active Substance: PANTOPRAZOLE SODIUM
  17. PANTOPRAZOLE SODIUM [Concomitant]
     Active Substance: PANTOPRAZOLE SODIUM
  18. MUCINEX [Concomitant]
     Active Substance: GUAIFENESIN
  19. MUCINEX [Concomitant]
     Active Substance: GUAIFENESIN
  20. LORATADINE [Concomitant]
     Active Substance: LORATADINE
  21. LORATADINE [Concomitant]
     Active Substance: LORATADINE
  22. FISH OIL [Concomitant]
     Active Substance: FISH OIL
  23. SYSTANE COMPLETE [Concomitant]
     Active Substance: PROPYLENE GLYCOL
  24. CLARITHROMYCIN [Concomitant]
     Active Substance: CLARITHROMYCIN
  25. EVOXAC [Concomitant]
     Active Substance: CEVIMELINE HYDROCHLORIDE
  26. MAGNESIUM [Concomitant]
     Active Substance: MAGNESIUM
  27. VITAMIN D3 [Concomitant]
     Active Substance: CHOLECALCIFEROL
  28. XIIDRA [Concomitant]
     Active Substance: LIFITEGRAST
  29. FLONASE ALLERGY RELIEF [Concomitant]
     Active Substance: FLUTICASONE PROPIONATE
  30. GABAPENTIN [Concomitant]
     Active Substance: GABAPENTIN
  31. SINGULAIR [Concomitant]
     Active Substance: MONTELUKAST SODIUM
  32. BREO ELLIPTA [Concomitant]
     Active Substance: FLUTICASONE FUROATE\VILANTEROL TRIFENATATE
  33. ALBUTEROL SULFATE [Concomitant]
     Active Substance: ALBUTEROL SULFATE
  34. SPIRIVA RESPIMAT [Concomitant]
     Active Substance: TIOTROPIUM BROMIDE
  35. CALCIUM CARBONATE\VITAMIN D [Concomitant]
     Active Substance: CALCIUM CARBONATE\VITAMIN D
  36. ACETAMINOPHEN\HYDROCODONE [Concomitant]
     Active Substance: ACETAMINOPHEN\HYDROCODONE
  37. KRILL OIL [Concomitant]
     Active Substance: DIETARY SUPPLEMENT\KRILL OIL
  38. PROBIOTICS NOS [Concomitant]
     Active Substance: PROBIOTICS NOS

REACTIONS (8)
  - Sleep disorder due to a general medical condition [Not Recovered/Not Resolved]
  - Sinusitis [Unknown]
  - Asthma [Unknown]
  - Dyspnoea [Not Recovered/Not Resolved]
  - Sinus operation [Unknown]
  - Injection site reaction [Unknown]
  - Back pain [Unknown]
  - Cough [Unknown]

NARRATIVE: CASE EVENT DATE: 20230101
